FAERS Safety Report 17339827 (Version 1)
Quarter: 2020Q1

REPORT INFORMATION
  Report Type: Spontaneous
  Country: US (occurrence: US)
  Receive Date: 20200129
  Receipt Date: 20200129
  Transmission Date: 20200409
  Serious: No
  Sender: FDA-Public Use
  Company Number: US-ALLERGAN-1921279US

PATIENT

DRUGS (2)
  1. BOTOX [Suspect]
     Active Substance: ONABOTULINUMTOXINA
     Dosage: (6-7) UNITS, SINGLE
     Route: 030
  2. BOTOX [Suspect]
     Active Substance: ONABOTULINUMTOXINA
     Indication: SKIN WRINKLING
     Dosage: (6-7) UNITS, SINGLE
     Route: 030

REACTIONS (5)
  - Hypersensitivity vasculitis [Unknown]
  - Eye swelling [Unknown]
  - Dyspnoea [Unknown]
  - Rash [Unknown]
  - Eyelid oedema [Recovering/Resolving]
